FAERS Safety Report 5604910-9 (Version None)
Quarter: 2008Q1

REPORT INFORMATION
  Report Type: 
  Country: None (occurrence: None)
  Receive Date: 20080123
  Receipt Date: 20080111
  Transmission Date: 20080703
  Serious: No
  Sender: FDA-Public Use
  Company Number: 2007-163464-NL

PATIENT
  Age: 40 Year
  Sex: Female

DRUGS (1)
  1. IMPLANON [Suspect]
     Dosage: INSERTION

REACTIONS (3)
  - COMPLICATION OF DEVICE REMOVAL [None]
  - DEVICE MIGRATION [None]
  - HYSTERECTOMY [None]
